FAERS Safety Report 5679362-3 (Version None)
Quarter: 2008Q1

REPORT INFORMATION
  Report Type: 
  Country: None (occurrence: None)
  Receive Date: 20080325
  Receipt Date: 20080313
  Transmission Date: 20080703
  Serious: Yes (Other)
  Sender: FDA-Public Use
  Company Number: CA-ROCHE-553305

PATIENT
  Age: 52 Year
  Sex: Female

DRUGS (3)
  1. PEGASYS [Suspect]
     Indication: HEPATITIS C
     Dosage: FORM: VIAL
     Route: 058
     Dates: start: 20061201
  2. COPEGUS [Suspect]
     Indication: HEPATITIS C
     Route: 048
     Dates: start: 20061201
  3. CELEXA [Concomitant]
     Indication: DEPRESSION
     Route: 048

REACTIONS (6)
  - CANDIDIASIS [None]
  - DEPRESSION [None]
  - HAEMOGLOBIN DECREASED [None]
  - LOOSE TOOTH [None]
  - STOMATITIS [None]
  - VISUAL DISTURBANCE [None]
